FAERS Safety Report 4796018-X (Version None)
Quarter: 2005Q4

REPORT INFORMATION
  Report Type: 
  Country: None (occurrence: None)
  Receive Date: 20051012
  Receipt Date: 20051010
  Transmission Date: 20060501
  Serious: Yes (Life-Threatening)
  Sender: FDA-Public Use
  Company Number: ES-MERCK-0510ESP00012

PATIENT
  Age: 79 Year
  Sex: Female

DRUGS (4)
  1. HYZAAR [Suspect]
     Indication: ESSENTIAL HYPERTENSION
     Route: 048
     Dates: start: 20000101
  2. RISPERDAL [Suspect]
     Route: 048
     Dates: start: 20000101
  3. PAROXETINE HYDROCHLORIDE [Suspect]
     Route: 048
     Dates: start: 20000101
  4. ZOCOR [Suspect]
     Route: 048
     Dates: start: 20000101

REACTIONS (1)
  - CEREBROVASCULAR DISORDER [None]
